FAERS Safety Report 8025373-2 (Version None)
Quarter: 2012Q1

REPORT INFORMATION
  Report Type: 
  Country: None (occurrence: None)
  Receive Date: 20120105
  Receipt Date: 20120102
  Transmission Date: 20120608
  Serious: Yes (Hospitalization)
  Sender: FDA-Public Use
  Company Number: FR-PFIZER INC-2012000122

PATIENT
  Age: 50 Year
  Sex: Male

DRUGS (6)
  1. ASPEGIC 325 [Suspect]
     Dosage: 100 MG, 1X/DAY
     Route: 048
     Dates: start: 20111019
  2. PERINDOPRIL ERBUMINE [Suspect]
     Dosage: 1 MG, 1X/DAY
     Route: 048
     Dates: start: 20111019
  3. SECTRAL [Suspect]
     Dosage: UNK
     Route: 048
     Dates: start: 20111019
  4. ATORVASTATIN CALCIUM [Suspect]
     Dosage: 80 MG, 1X/DAY
     Route: 048
     Dates: start: 20111019
  5. PLAVIX [Suspect]
     Dosage: 75 MG, 1X/DAY
     Route: 048
  6. PLAVIX [Suspect]
     Dosage: 75 MG, 2X/WEEK
     Route: 048
     Dates: start: 20111019

REACTIONS (2)
  - RASH PAPULAR [None]
  - PRURITUS [None]
